FAERS Safety Report 7634599-9 (Version None)
Quarter: 2011Q3

REPORT INFORMATION
  Report Type: 
  Country: None (occurrence: None)
  Receive Date: 20110725
  Receipt Date: 20090828
  Transmission Date: 20111222
  Serious: Yes (Death)
  Sender: FDA-Public Use
  Company Number: US-AMGEN-US346639

PATIENT
  Age: 75 Year
  Sex: Male
  Weight: 57.2 kg

DRUGS (5)
  1. NPLATE [Suspect]
     Indication: IDIOPATHIC THROMBOCYTOPENIC PURPURA
     Dosage: 540 A?G, QWK
     Route: 058
     Dates: start: 20090202, end: 20090409
  2. NEUPOGEN [Suspect]
     Indication: MYELODYSPLASTIC SYNDROME
  3. DANAZOL [Concomitant]
  4. NPLATE [Suspect]
     Dates: start: 20090202
  5. PROCRIT [Suspect]
     Indication: MYELODYSPLASTIC SYNDROME

REACTIONS (2)
  - PANCYTOPENIA [None]
  - MYELOFIBROSIS [None]
